FAERS Safety Report 4646082-3 (Version None)
Quarter: 2005Q2

REPORT INFORMATION
  Report Type: 
  Country: None (occurrence: None)
  Receive Date: 20050427
  Receipt Date: 20040429
  Transmission Date: 20051028
  Serious: Yes (Hospitalization, Other)
  Sender: FDA-Public Use
  Company Number: US-GLAXOSMITHKLINE-A0508960A

PATIENT
  Age: 65 Year
  Sex: Female
  Weight: 45.9 kg

DRUGS (5)
  1. ZOFRAN [Suspect]
     Dosage: 4MG SINGLE DOSE
     Route: 042
     Dates: start: 20040419
  2. VIOXX [Concomitant]
  3. PROTONIX [Concomitant]
  4. FOSAMAX [Concomitant]
  5. VOLTAREN [Concomitant]
     Route: 047

REACTIONS (3)
  - DYSKINESIA [None]
  - DYSTONIA [None]
  - EXTRAPYRAMIDAL DISORDER [None]
